FAERS Safety Report 18440865 (Version 3)
Quarter: 2020Q4

REPORT INFORMATION
  Report Type: Report from Study
  Country: GB (occurrence: GB)
  Receive Date: 20201029
  Receipt Date: 20201206
  Transmission Date: 20210114
  Serious: Yes (Other)
  Sender: FDA-Public Use
  Company Number: NVSC2020GB286636

PATIENT
  Sex: Female

DRUGS (3)
  1. COSENTYX [Suspect]
     Active Substance: SECUKINUMAB
     Dosage: 300 MG, QW
     Route: 058
     Dates: start: 2020
  2. COSENTYX [Suspect]
     Active Substance: SECUKINUMAB
     Indication: PSORIATIC ARTHROPATHY
     Dosage: 300 MG, QW
     Route: 058
     Dates: start: 2020
  3. COSENTYX [Suspect]
     Active Substance: SECUKINUMAB
     Dosage: 300 MG, QW (ON WEKKS 0, 1, 2, 3 AND 4 FOLLOWED BY ONCE MONTHLY)
     Route: 058
     Dates: start: 20201010

REACTIONS (15)
  - Parkinson^s disease [Unknown]
  - Rash [Unknown]
  - Psoriatic arthropathy [Unknown]
  - Vision blurred [Unknown]
  - Pruritus [Unknown]
  - Conjunctivitis [Unknown]
  - Blister [Unknown]
  - Tremor [Unknown]
  - Swelling [Unknown]
  - Blood pressure fluctuation [Unknown]
  - Peripheral swelling [Unknown]
  - Pyrexia [Not Recovered/Not Resolved]
  - Ear pain [Unknown]
  - Dyspnoea [Unknown]
  - Stomatitis [Unknown]
